FAERS Safety Report 9592328 (Version 1)
Quarter: 2013Q4

REPORT INFORMATION
  Report Type: Spontaneous
  Country: US (occurrence: None)
  Receive Date: 20131003
  Receipt Date: 20131003
  Transmission Date: 20140711
  Serious: No
  Sender: FDA-Public Use
  Company Number: None

PATIENT
  Age: 55 Year
  Sex: Male

DRUGS (1)
  1. LEVOFLOXACIN [Suspect]
     Indication: EPIDIDYMITIS
     Dosage: 1 PILL
     Route: 048
     Dates: start: 20130926, end: 20131001

REACTIONS (8)
  - Fatigue [None]
  - Asthenia [None]
  - Disturbance in attention [None]
  - Insomnia [None]
  - Burning sensation [None]
  - Musculoskeletal pain [None]
  - Muscular weakness [None]
  - Muscular weakness [None]
